FAERS Safety Report 5495002-0 (Version None)
Quarter: 2007Q4

REPORT INFORMATION
  Report Type: 
  Country: None (occurrence: None)
  Receive Date: 20071015
  Receipt Date: 20070402
  Transmission Date: 20080405
  Serious: Yes (Other)
  Sender: FDA-Public Use
  Company Number: S07-USA-01427-01

PATIENT
  Age: 55 Year
  Sex: Female

DRUGS (3)
  1. LEXAPRO [Suspect]
     Indication: DEPRESSION
     Dosage: 30 MG QD PO
     Route: 048
     Dates: start: 20040101, end: 20070327
  2. LEXAPRO [Suspect]
     Indication: DEPRESSION
     Dosage: 30 MG QD PO
     Route: 048
     Dates: start: 20070330
  3. PAXIL [Concomitant]

REACTIONS (4)
  - AGGRESSION [None]
  - ANGER [None]
  - INSOMNIA [None]
  - PSYCHOMOTOR HYPERACTIVITY [None]
